FAERS Safety Report 16822532 (Version 1)
Quarter: 2019Q3

REPORT INFORMATION
  Report Type: Spontaneous
  Country: AR (occurrence: AR)
  Receive Date: 20190918
  Receipt Date: 20190918
  Transmission Date: 20191005
  Serious: Yes (Other)
  Sender: FDA-Public Use
  Company Number: AR-PFIZER INC-2019400729

PATIENT
  Age: 73 Year
  Sex: Female

DRUGS (2)
  1. IBRANCE [Suspect]
     Active Substance: PALBOCICLIB
     Dosage: 125 MG, UNK
     Dates: start: 201907, end: 201907
  2. FULVESTRANT. [Concomitant]
     Active Substance: FULVESTRANT

REACTIONS (3)
  - Pain [Unknown]
  - Thrombosis [Unknown]
  - Neoplasm progression [Unknown]
